FAERS Safety Report 25218122 (Version 1)
Quarter: 2025Q2

REPORT INFORMATION
  Report Type: Spontaneous
  Country: TW (occurrence: TW)
  Receive Date: 20250421
  Receipt Date: 20250421
  Transmission Date: 20250717
  Serious: Yes (Other)
  Sender: AMGEN
  Company Number: TW-PFIZER INC-PV202500044529

PATIENT
  Age: 66 Year
  Sex: Female

DRUGS (1)
  1. ENBREL [Suspect]
     Active Substance: ETANERCEPT
     Indication: Rheumatoid arthritis
     Dosage: 25 MG, Q2W
     Route: 058
     Dates: start: 20110216, end: 20250307

REACTIONS (1)
  - Lung adenocarcinoma [Unknown]
